FAERS Safety Report 5165291-0 (Version None)
Quarter: 2006Q4

REPORT INFORMATION
  Report Type: 
  Country: None (occurrence: None)
  Receive Date: 20061124
  Receipt Date: 20061110
  Transmission Date: 20070319
  Serious: Yes (Other)
  Sender: FDA-Public Use
  Company Number: 2006142353

PATIENT
  Sex: Female

DRUGS (1)
  1. IRINOTECAN HCL [Suspect]

REACTIONS (2)
  - CONDITION AGGRAVATED [None]
  - ESSENTIAL HYPERTENSION [None]
